FAERS Safety Report 9938957 (Version 1)
Quarter: 2014Q1

REPORT INFORMATION
  Report Type: Report from Study
  Country: US (occurrence: US)
  Receive Date: 20140303
  Receipt Date: 20140303
  Transmission Date: 20141002
  Serious: No
  Sender: FDA-Public Use
  Company Number: US-ABBVIE-13P-163-1032853-00

PATIENT
  Sex: Female

DRUGS (5)
  1. HUMIRA [Suspect]
     Indication: CROHN^S DISEASE
     Route: 058
     Dates: start: 201208
  2. PROMETHAZINE - CODEINE [Concomitant]
     Indication: PRODUCT USED FOR UNKNOWN INDICATION
  3. VALTREX [Concomitant]
     Indication: HERPES ZOSTER
     Dosage: 1GM CAPLET
  4. PERCOCET [Concomitant]
     Indication: PAIN
  5. PERCOCET [Concomitant]
     Indication: CROHN^S DISEASE

REACTIONS (6)
  - Injection site bruising [Unknown]
  - Arthralgia [Unknown]
  - Herpes zoster [Unknown]
  - Influenza [Unknown]
  - Pain [Unknown]
  - Crohn^s disease [Unknown]
